FAERS Safety Report 5365894-4 (Version None)
Quarter: 2007Q2

REPORT INFORMATION
  Report Type: 
  Country: None (occurrence: None)
  Receive Date: 20070621
  Receipt Date: 20070614
  Transmission Date: 20071010
  Serious: Yes (Hospitalization)
  Sender: FDA-Public Use
  Company Number: DE-MERCK-0705DEU00028

PATIENT
  Age: 38 Year
  Sex: Female
  Weight: 68 kg

DRUGS (3)
  1. SINGULAIR [Suspect]
     Indication: SEASONAL ALLERGY
     Route: 048
     Dates: start: 20070307, end: 20070411
  2. SINGULAIR [Suspect]
     Indication: ASTHMA
     Route: 048
     Dates: start: 20070307, end: 20070411
  3. LORATADINE [Concomitant]
     Indication: SEASONAL ALLERGY
     Route: 048
     Dates: start: 20070227, end: 20070416

REACTIONS (2)
  - ARTHROPATHY [None]
  - INJECTION SITE ABSCESS [None]
